FAERS Safety Report 9194303 (Version 3)
Quarter: 2013Q2

REPORT INFORMATION
  Report Type: Spontaneous
  Country: JP (occurrence: JP)
  Receive Date: 20130327
  Receipt Date: 20130501
  Transmission Date: 20140414
  Serious: Yes (Death, Life-Threatening, Hospitalization, Other)
  Sender: FDA-Public Use
  Company Number: JP-B.I. PHARMACEUTICALS,INC./RIDGEFIELD-2013-BI-07818NB

PATIENT
  Age: 86 Year
  Sex: Male

DRUGS (14)
  1. SPIRIVA [Suspect]
     Indication: CHRONIC OBSTRUCTIVE PULMONARY DISEASE
     Route: 055
     Dates: end: 20130301
  2. BISOLVON [Suspect]
     Dosage: 8 ML
     Route: 042
     Dates: start: 20130222, end: 20130319
  3. BISOLVON [Suspect]
     Dosage: 6 ML
     Route: 055
     Dates: start: 20130315, end: 20130319
  4. YUCION-S [Suspect]
     Dosage: 6 MG
     Route: 065
     Dates: start: 20130216, end: 20130220
  5. ZOSYN [Suspect]
     Route: 065
     Dates: start: 20130220, end: 20130301
  6. CIPROFLOXACIN [Suspect]
     Route: 065
     Dates: start: 20130302, end: 20130304
  7. ZYVOX [Suspect]
     Route: 065
     Dates: start: 20130304, end: 20130308
  8. TEICOPLANIN [Suspect]
     Route: 065
     Dates: start: 20130309, end: 20130316
  9. ADALAT [Concomitant]
     Route: 065
     Dates: start: 20130218, end: 20130221
  10. DIOVAN [Concomitant]
     Route: 065
     Dates: start: 20130218, end: 20130221
  11. SOLANAX [Concomitant]
     Route: 065
     Dates: start: 20130218, end: 20130221
  12. MUCOSOLVAN [Concomitant]
     Route: 065
     Dates: start: 20130218, end: 20130221
  13. MEPTIN AIR [Concomitant]
     Route: 055
     Dates: start: 20130315, end: 20130319
  14. SEISHOKU [Concomitant]
     Route: 055
     Dates: start: 20130315, end: 20130319

REACTIONS (5)
  - Pneumonia [Fatal]
  - Hepatic function abnormal [Not Recovered/Not Resolved]
  - Renal impairment [Not Recovered/Not Resolved]
  - Bile duct cancer [Unknown]
  - Chronic obstructive pulmonary disease [Not Recovered/Not Resolved]
